FAERS Safety Report 11231546 (Version 1)
Quarter: 2015Q2

REPORT INFORMATION
  Report Type: Spontaneous
  Country: US (occurrence: None)
  Receive Date: 20150629
  Receipt Date: 20150629
  Transmission Date: 20150821
  Serious: Yes (Life-Threatening, Disabling, Other)
  Sender: FDA-Public Use
  Company Number: None

PATIENT
  Age: 43 Year
  Sex: Male
  Weight: 88.45 kg

DRUGS (3)
  1. DEPO-MEDROL [Suspect]
     Active Substance: METHYLPREDNISOLONE ACETATE
     Indication: RADICULAR PAIN
     Dates: start: 20090227, end: 20090430
  2. DEPO-MEDROL [Suspect]
     Active Substance: METHYLPREDNISOLONE ACETATE
     Indication: BACK PAIN
     Dates: start: 20090227, end: 20090430
  3. DEPO-MEDROL [Suspect]
     Active Substance: METHYLPREDNISOLONE ACETATE
     Indication: INTERVERTEBRAL DISC PROTRUSION
     Dates: start: 20090227, end: 20090430

REACTIONS (12)
  - Cardiac arrest [None]
  - Back pain [None]
  - Paraesthesia [None]
  - Arthralgia [None]
  - Dyskinesia [None]
  - Muscle spasms [None]
  - Surgical failure [None]
  - Neck pain [None]
  - Loss of consciousness [None]
  - Nausea [None]
  - Cerebrospinal fluid leakage [None]
  - Injury [None]

NARRATIVE: CASE EVENT DATE: 20090227
